FAERS Safety Report 9287796 (Version 2)
Quarter: 2013Q3

REPORT INFORMATION
  Report Type: Spontaneous
  Country: US (occurrence: US)
  Receive Date: 20130514
  Receipt Date: 20130708
  Transmission Date: 20140515
  Serious: No
  Sender: FDA-Public Use
  Company Number: US-PFIZER INC-2013146782

PATIENT
  Sex: Female

DRUGS (1)
  1. ADVIL PM [Suspect]
     Indication: PAIN IN EXTREMITY
     Dosage: UNK, 1X/DAY (ONCE A DAY)
     Route: 048

REACTIONS (1)
  - Drug ineffective [Unknown]
